FAERS Safety Report 6440390-1 (Version None)
Quarter: 2009Q4

REPORT INFORMATION
  Report Type: 
  Country: None (occurrence: None)
  Receive Date: 20091113
  Receipt Date: 20091105
  Transmission Date: 20100525
  Serious: Yes (Hospitalization)
  Sender: FDA-Public Use
  Company Number: PHHY2009CH48178

PATIENT
  Sex: Female

DRUGS (13)
  1. RITALIN [Suspect]
     Indication: DISTURBANCE IN ATTENTION
     Dosage: 80 MG / DAY
  2. PASPERTIN                               /SCH/ [Suspect]
     Dosage: 12 MG/DAY
  3. LAMICTAL [Suspect]
     Indication: BIPOLAR DISORDER
     Dosage: 200 MG/DAY
  4. PRAZINE [Suspect]
     Indication: BIPOLAR DISORDER
     Dosage: 150 MG/DAY
  5. SEROQUEL [Suspect]
     Dosage: 650 MG/DAY
  6. LORAZEPAM [Suspect]
     Dosage: 2 MG/DAY
  7. SERTRALINE HCL [Suspect]
     Indication: DEPRESSION
     Dosage: 50 MG/D
     Dates: start: 20090825
  8. BUSCOPAN [Suspect]
     Indication: CHOLECYSTITIS
     Dosage: 30 MG/D
  9. DAFALGAN [Suspect]
     Dosage: 3000  MG/DAY
  10. MEFENACID [Suspect]
     Indication: CHOLECYSTITIS
     Dosage: 1500 MG/DAY
  11. NEXIUM [Suspect]
     Dosage: 40 MG/DAY
  12. RIOPAN [Suspect]
     Dosage: 800 MG/DAY
  13. ZOVIRAX [Suspect]
     Indication: HERPES VIRUS INFECTION
     Dosage: UNK
     Dates: start: 20090828

REACTIONS (2)
  - ABORTION INDUCED [None]
  - DRUG EXPOSURE DURING PREGNANCY [None]
